FAERS Safety Report 5320832-5 (Version None)
Quarter: 2007Q2

REPORT INFORMATION
  Report Type: 
  Country: None (occurrence: None)
  Receive Date: 20070502
  Receipt Date: 20070426
  Transmission Date: 20071010
  Serious: Yes (Other)
  Sender: FDA-Public Use
  Company Number: 012991

PATIENT
  Sex: Female

DRUGS (3)
  1. MEDROXYPROGESTERONE [Suspect]
     Dosage: ORAL
     Route: 048
     Dates: start: 19990301, end: 20000801
  2. OGEN [Suspect]
     Dosage: ORAL
     Route: 048
     Dates: start: 19990301, end: 20000801
  3. PROVERA [Suspect]
     Dosage: ORAL
     Route: 048
     Dates: start: 19990301, end: 20000801

REACTIONS (1)
  - BREAST CANCER FEMALE [None]
